FAERS Safety Report 6290877-X (Version None)
Quarter: 2009Q3

REPORT INFORMATION
  Report Type: 
  Country: None (occurrence: None)
  Receive Date: 20090730
  Receipt Date: 20090720
  Transmission Date: 20100115
  Serious: Yes (Other)
  Sender: FDA-Public Use
  Company Number: GB-PFIZER INC-2009243427

PATIENT
  Age: 23 Year

DRUGS (2)
  1. FLUCONAZOLE [Suspect]
     Dosage: 100 MG, 1X/DAY
  2. PREDNISOLONE AND PREDNISOLONE STEAGLATE [Suspect]
     Dosage: 20 MG, 1X/DAY

REACTIONS (1)
  - STEVENS-JOHNSON SYNDROME [None]
